FAERS Safety Report 9714010 (Version 1)
Quarter: 2013Q4

REPORT INFORMATION
  Report Type: Spontaneous
  Country: US (occurrence: US)
  Receive Date: 20131126
  Receipt Date: 20131126
  Transmission Date: 20140711
  Serious: No
  Sender: FDA-Public Use
  Company Number: US-GILEAD-2008-0018551

PATIENT
  Sex: Female
  Weight: 107.5 kg

DRUGS (10)
  1. LETAIRIS [Suspect]
     Indication: PULMONARY ARTERIAL HYPERTENSION
     Route: 048
     Dates: start: 20080929
  2. LASIX [Concomitant]
  3. CARTIA XT [Concomitant]
  4. GLIPIZIDE [Concomitant]
  5. SYNTHROID [Concomitant]
  6. POTASSIUM CHLORIDE [Concomitant]
  7. SERTRALINE [Concomitant]
  8. IPRATROPIUM 0.02%/ NEB SOL [Concomitant]
  9. TYLENOL [Concomitant]
  10. BROVANA 15MCG/ 2ML SOL [Concomitant]

REACTIONS (2)
  - Dyspnoea [None]
  - Oedema peripheral [None]
